FAERS Safety Report 4389739-4 (Version None)
Quarter: 2004Q2

REPORT INFORMATION
  Report Type: 
  Country: None (occurrence: None)
  Receive Date: 20040629
  Receipt Date: 20030623
  Transmission Date: 20050107
  Serious: Yes (Hospitalization)
  Sender: FDA-Public Use
  Company Number: US-JNJFOC-20030603273

PATIENT
  Age: 48 Year
  Sex: Male

DRUGS (2)
  1. DURAGESIC [Suspect]
     Indication: PAIN
     Dosage: 125 UG/HR, TRANSDERMAL
     Route: 062
  2. MORPHINE [Concomitant]

REACTIONS (2)
  - OEDEMA [None]
  - PAIN [None]
